FAERS Safety Report 7646034-5 (Version None)
Quarter: 2011Q3

REPORT INFORMATION
  Report Type: 
  Country: None (occurrence: None)
  Receive Date: 20110801
  Receipt Date: 20110721
  Transmission Date: 20111222
  Serious: Yes (Hospitalization, Other)
  Sender: FDA-Public Use
  Company Number: FR-AMGEN-FRASP2011037817

PATIENT
  Age: 43 Year
  Sex: Male

DRUGS (4)
  1. ACETAMINOPHEN [Concomitant]
     Dosage: UNK UNK, UNK
  2. CARTREX [Concomitant]
     Dosage: UNK UNK, UNK
  3. ENBREL [Suspect]
     Indication: ANKYLOSING SPONDYLITIS
     Dosage: 50 MG, WEEKLY
     Dates: start: 20050101
  4. NEXIUM [Concomitant]
     Dosage: UNK UNK, UNK

REACTIONS (10)
  - PANCREATITIS [None]
  - FATIGUE [None]
  - APICAL GRANULOMA [None]
  - DYSPHAGIA [None]
  - ASPHYXIA [None]
  - TOOTH EXTRACTION [None]
  - GASTROENTERITIS [None]
  - HIP ARTHROPLASTY [None]
  - RENAL FUNCTION TEST ABNORMAL [None]
  - INFECTION [None]
